FAERS Safety Report 14999919 (Version 1)
Quarter: 2018Q2

REPORT INFORMATION
  Report Type: Spontaneous
  Country: US (occurrence: US)
  Receive Date: 20180612
  Receipt Date: 20180612
  Transmission Date: 20180711
  Serious: Yes (Other)
  Sender: FDA-Public Use
  Company Number: US-ACCORD-068127

PATIENT
  Age: 79 Year
  Sex: Male
  Weight: 84.37 kg

DRUGS (1)
  1. GLIMEPIRIDE ACCORD [Suspect]
     Active Substance: GLIMEPIRIDE
     Indication: BLOOD GLUCOSE DECREASED
     Dosage: DOSE: 1 BID, STRENGTH: 4 MG
     Route: 048

REACTIONS (5)
  - Nightmare [Unknown]
  - Overdose [Unknown]
  - Fall [Unknown]
  - Wrong technique in product usage process [Unknown]
  - Facial bones fracture [Unknown]

NARRATIVE: CASE EVENT DATE: 20180526
